FAERS Safety Report 7675785-1 (Version None)
Quarter: 2011Q3

REPORT INFORMATION
  Report Type: 
  Country: None (occurrence: None)
  Receive Date: 20110810
  Receipt Date: 20110808
  Transmission Date: 20111222
  Serious: Yes (Other)
  Sender: FDA-Public Use
  Company Number: ES-GILEAD-2011-0041454

PATIENT
  Sex: Male

DRUGS (3)
  1. TRUVADA [Suspect]
     Indication: HIV INFECTION
  2. ANAGRELIDE HCL [Suspect]
     Indication: PLATELET COUNT DECREASED
  3. TRUVADA [Suspect]
     Indication: HEPATITIS B

REACTIONS (1)
  - NEPHROPATHY TOXIC [None]
